FAERS Safety Report 9160276 (Version 2)
Quarter: 2013Q1

REPORT INFORMATION
  Report Type: Spontaneous
  Country: JP (occurrence: JP)
  Receive Date: 20130313
  Receipt Date: 20130328
  Transmission Date: 20140127
  Serious: Yes (Other)
  Sender: FDA-Public Use
  Company Number: JP-JNJFOC-20130212325

PATIENT
  Age: 77 Year
  Sex: Female

DRUGS (6)
  1. TRAMCET [Suspect]
     Indication: PAIN
     Dosage: 1 PER DAY
     Route: 048
     Dates: start: 201208
  2. EDIROL [Concomitant]
     Route: 065
  3. BENET [Concomitant]
     Route: 065
  4. SODIUM SALICYLATE [Concomitant]
     Route: 065
  5. MUCOSTA [Concomitant]
     Route: 065
  6. LOXONIN [Concomitant]
     Route: 065

REACTIONS (2)
  - Liver function test abnormal [Recovered/Resolved]
  - Cholangiogram abnormal [Unknown]
